FAERS Safety Report 8932453 (Version 1)
Quarter: 2012Q4

REPORT INFORMATION
  Report Type: Report from Study
  Country: GB (occurrence: RO)
  Receive Date: 20121128
  Receipt Date: 20121128
  Transmission Date: 20130627
  Serious: Yes (Death, Hospitalization)
  Sender: FDA-Public Use
  Company Number: RO-ELI_LILLY_AND_COMPANY-RO201211008187

PATIENT
  Age: 72 Year
  Sex: Male
  Weight: 88 kg

DRUGS (5)
  1. PEMETREXED [Suspect]
     Indication: NON-SMALL CELL LUNG CANCER
     Dosage: 500 mg/m2, 1 in 3 weeks
     Route: 042
     Dates: start: 20060727, end: 20060817
  2. PEMETREXED [Suspect]
     Dosage: 375 mg/m2, 1 in 3 weeks
     Dates: start: 20060817
  3. METHYLPREDISOLONE [Concomitant]
     Dosage: 40 mg, every 3 weeks for 3 days
     Dates: start: 20060818, end: 20060820
  4. FOLIC ACID [Concomitant]
     Dosage: 1000 ug, UNK
     Dates: start: 20060720
  5. VITAMIN B12 [Concomitant]

REACTIONS (2)
  - Renal failure [Fatal]
  - Upper gastrointestinal haemorrhage [Not Recovered/Not Resolved]
